FAERS Safety Report 4437470-9 (Version None)
Quarter: 2004Q3

REPORT INFORMATION
  Report Type: 
  Country: None (occurrence: None)
  Receive Date: 20040830
  Receipt Date: 20040802
  Transmission Date: 20050211
  Serious: Yes (Other)
  Sender: FDA-Public Use
  Company Number: PHBS2004BE10133

PATIENT
  Age: 80 Year
  Sex: Male

DRUGS (1)
  1. DICLOFENAC SODIUM [Suspect]
     Dosage: 75 MG, TID
     Route: 048

REACTIONS (5)
  - ACCIDENTAL OVERDOSE [None]
  - COGNITIVE DISORDER [None]
  - DISORIENTATION [None]
  - MEDICATION ERROR [None]
  - MEMORY IMPAIRMENT [None]
